FAERS Safety Report 8221482-3 (Version None)
Quarter: 2012Q1

REPORT INFORMATION
  Report Type: 
  Country: None (occurrence: None)
  Receive Date: 20120320
  Receipt Date: 20120315
  Transmission Date: 20120608
  Serious: Yes (Hospitalization, Other)
  Sender: FDA-Public Use
  Company Number: FR-PFIZER INC-2012067903

PATIENT
  Age: 91 Year
  Sex: Female

DRUGS (7)
  1. NEBIVOLOL HCL [Suspect]
     Dosage: UNK
     Route: 048
     Dates: end: 20120205
  2. ALDACTONE [Suspect]
     Indication: CARDIAC FAILURE
     Dosage: UNK
     Route: 048
     Dates: end: 20120205
  3. ATACAND [Suspect]
     Dosage: UNK
     Route: 048
     Dates: end: 20120205
  4. CORDARONE [Concomitant]
  5. LASIX [Concomitant]
  6. RABEPRAZOLE SODIUM [Concomitant]
  7. IPERTEN [Concomitant]

REACTIONS (4)
  - BRADYCARDIA [None]
  - HYPERKALAEMIA [None]
  - RENAL FAILURE [None]
  - HYPERTHYROIDISM [None]
